FAERS Safety Report 6867413-X (Version None)
Quarter: 2010Q3

REPORT INFORMATION
  Report Type: 
  Country: None (occurrence: None)
  Receive Date: 20100722
  Receipt Date: 20100720
  Transmission Date: 20110219
  Serious: Yes (Hospitalization)
  Sender: FDA-Public Use
  Company Number: US-BRISTOL-MYERS SQUIBB COMPANY-15148034

PATIENT
  Age: 44 Year
  Sex: Female
  Weight: 77 kg

DRUGS (6)
  1. ORENCIA [Suspect]
     Indication: RHEUMATOID ARTHRITIS
     Dosage: INTERRPT'D ON 20JAN2010,REST'D ON 19MAY10. INF:12MAY08,25NOV09,28DEC09,20JAN09,19MAY09 AND 02JUN10
     Dates: start: 20080512
  2. IMURAN [Suspect]
     Dates: start: 20041227, end: 20100101
  3. RESTASIS [Concomitant]
  4. PREDNISONE [Concomitant]
  5. PROTONIX [Concomitant]
  6. TYLENOL [Concomitant]

REACTIONS (2)
  - NAUSEA [None]
  - VOMITING [None]
